FAERS Safety Report 8784255 (Version 1)
Quarter: 2012Q4

REPORT INFORMATION
  Report Type: 
  Country: US (occurrence: US)
  Receive Date: 20120913
  Receipt Date: 20120913
  Transmission Date: 20130627
  Serious: No
  Sender: FDA-Public Use
  Company Number: US-ASTRAZENECA-2012SE69575

PATIENT
  Age: 46 Year
  Sex: Female

DRUGS (3)
  1. SEROQUEL XR [Suspect]
     Route: 048
  2. ADDERALL [Concomitant]
  3. ANTI DEPRESSANT [Concomitant]

REACTIONS (3)
  - Attention deficit/hyperactivity disorder [Unknown]
  - Disturbance in attention [Unknown]
  - Somnolence [Unknown]
